FAERS Safety Report 5403654-6 (Version None)
Quarter: 2007Q3

REPORT INFORMATION
  Report Type: 
  Country: None (occurrence: None)
  Receive Date: 20070802
  Receipt Date: 20070725
  Transmission Date: 20080115
  Serious: Yes (Other)
  Sender: FDA-Public Use
  Company Number: PHNU2007DE02645

PATIENT
  Age: 39 Year
  Sex: Female

DRUGS (6)
  1. ZOMETA [Suspect]
     Indication: METASTASIS
     Route: 065
     Dates: start: 20040101
  2. SEVREDOL [Concomitant]
     Route: 065
  3. AMITRIPTYLINE HCL [Concomitant]
     Route: 065
  4. TAVOR [Concomitant]
     Route: 065
  5. PANTOPRAZOLE SODIUM [Concomitant]
     Route: 065
  6. TRANSTEC [Concomitant]
     Dosage: 70 UG/HR, UNK
     Route: 065

REACTIONS (9)
  - BIOPSY SITE UNSPECIFIED ABNORMAL [None]
  - IMPAIRED HEALING [None]
  - JAW FRACTURE [None]
  - ORAL SURGERY [None]
  - OSTEITIS [None]
  - OSTEONECROSIS [None]
  - TOOTH EXTRACTION [None]
  - WOUND CLOSURE [None]
  - X-RAY DENTAL [None]
